FAERS Safety Report 7096578-2 (Version None)
Quarter: 2010Q4

REPORT INFORMATION
  Report Type: 
  Country: None (occurrence: None)
  Receive Date: 20101111
  Receipt Date: 20101102
  Transmission Date: 20110411
  Serious: Yes (Life-Threatening)
  Sender: FDA-Public Use
  Company Number: B0683412A

PATIENT
  Sex: Male
  Weight: 41.6 kg

DRUGS (84)
  1. ALKERAN [Suspect]
     Indication: ALLOGENIC BONE MARROW TRANSPLANTATION THERAPY
     Dosage: 68MGM2 PER DAY
     Route: 042
     Dates: start: 20091001, end: 20091003
  2. CYCLOSPORINE [Concomitant]
     Indication: IMMUNOSUPPRESSION
     Route: 065
     Dates: start: 20091011, end: 20100118
  3. METHOTREXATE [Concomitant]
     Indication: IMMUNOSUPPRESSION
     Route: 065
     Dates: start: 20091009, end: 20091009
  4. METHOTREXATE [Concomitant]
     Route: 065
     Dates: start: 20091011, end: 20091011
  5. METHOTREXATE [Concomitant]
     Route: 042
     Dates: start: 20091014, end: 20091014
  6. ZOSYN [Concomitant]
     Dates: start: 20091008, end: 20091012
  7. ZOSYN [Concomitant]
     Dates: start: 20091010, end: 20091012
  8. MEROPEN [Concomitant]
     Dosage: 1500MG PER DAY
     Route: 042
     Dates: start: 20091012
  9. AMIKACIN SULFATE [Concomitant]
     Dosage: 300MG PER DAY
     Dates: start: 20091012, end: 20091013
  10. TARGOCID [Concomitant]
     Route: 042
     Dates: start: 20091013, end: 20091026
  11. FUROSEMIDE [Concomitant]
     Route: 042
     Dates: start: 20091007, end: 20091120
  12. THYMOMODULIN [Concomitant]
     Route: 042
     Dates: start: 20091015, end: 20091025
  13. DIFLUCAN [Concomitant]
     Route: 048
     Dates: start: 20091001, end: 20091015
  14. MAGLAX [Concomitant]
     Route: 048
     Dates: start: 20091001
  15. ULCERLMIN [Concomitant]
     Route: 048
     Dates: start: 20091001, end: 20091022
  16. ZOVIRAX [Concomitant]
     Route: 048
     Dates: start: 20091001
  17. CEFZON [Concomitant]
     Route: 048
     Dates: start: 20091001, end: 20091015
  18. BAKTAR [Concomitant]
     Route: 048
     Dates: start: 20091009
  19. ADALAT [Concomitant]
     Route: 048
     Dates: start: 20091009, end: 20091018
  20. HACHIAZULE [Concomitant]
     Route: 002
     Dates: start: 20091010, end: 20091030
  21. XYLOCAINE [Concomitant]
     Route: 061
     Dates: start: 20091010, end: 20091030
  22. PETROLATUM [Concomitant]
     Route: 061
     Dates: start: 20091011, end: 20091011
  23. CALONAL [Concomitant]
     Route: 048
     Dates: start: 20091011, end: 20091020
  24. METHYLROSANILINIUM CHLORIDE [Concomitant]
     Route: 061
     Dates: start: 20091015, end: 20091022
  25. XYLOCAINE [Concomitant]
     Route: 061
     Dates: start: 20091015, end: 20091022
  26. FLAVITAN [Concomitant]
     Route: 048
     Dates: start: 20091015, end: 20091022
  27. HYALEIN [Concomitant]
     Route: 031
     Dates: start: 20091016, end: 20091016
  28. INDOMETHACIN [Concomitant]
     Route: 062
     Dates: start: 20091017, end: 20091017
  29. MONILAC [Concomitant]
     Route: 048
     Dates: start: 20091018, end: 20091020
  30. SLOW-K [Concomitant]
     Route: 048
     Dates: start: 20091020, end: 20091021
  31. URSO 250 [Concomitant]
     Route: 048
     Dates: start: 20091001, end: 20091217
  32. URSO 250 [Concomitant]
     Route: 048
     Dates: start: 20091001, end: 20091203
  33. POTASSIUM CHLORIDE [Concomitant]
     Route: 048
     Dates: start: 20091020, end: 20091022
  34. GOODMIN [Concomitant]
     Route: 048
     Dates: start: 20091021, end: 20091025
  35. ZINC OXIDE [Concomitant]
     Route: 061
     Dates: start: 20091021, end: 20091021
  36. HIRUDOID [Concomitant]
     Route: 061
     Dates: start: 20091215, end: 20091215
  37. PROMAC [Concomitant]
     Route: 048
     Dates: start: 20091201
  38. HEAVY MAGNESIUM OXIDE [Concomitant]
     Route: 048
     Dates: start: 20091201
  39. NEORAL [Concomitant]
     Route: 048
     Dates: start: 20091201
  40. TPN [Concomitant]
     Route: 048
     Dates: start: 20091101, end: 20091203
  41. VFEND [Concomitant]
     Route: 048
     Dates: start: 20091118
  42. RESTAMIN [Concomitant]
     Route: 061
     Dates: start: 20091118, end: 20091124
  43. POLARAMINE [Concomitant]
     Route: 048
     Dates: start: 20091120, end: 20091126
  44. EBASTINE [Concomitant]
     Route: 048
     Dates: start: 20091122, end: 20091217
  45. RELENZA [Concomitant]
     Route: 055
     Dates: start: 20091201, end: 20091210
  46. FLUTIDE DISKUS [Concomitant]
     Route: 055
     Dates: start: 20091203
  47. RINDERON-V [Concomitant]
     Route: 061
     Dates: start: 20091209, end: 20091209
  48. FOIPAN [Concomitant]
     Route: 048
     Dates: start: 20091215
  49. PROTEAMIN [Concomitant]
     Route: 042
     Dates: start: 20091001, end: 20091018
  50. SOLITA-T [Concomitant]
     Route: 042
     Dates: start: 20091001, end: 20091006
  51. TPN [Concomitant]
     Route: 042
     Dates: start: 20091001, end: 20091018
  52. FRAGMIN [Concomitant]
     Route: 042
     Dates: start: 20091001, end: 20091006
  53. POTASSIUM CHLORIDE [Concomitant]
     Route: 042
     Dates: start: 20091001, end: 20091006
  54. HIGH-CALORIE TRANSFUSION FLUID [Concomitant]
     Route: 042
     Dates: start: 20091001, end: 20091006
  55. NEOLAMIN [Concomitant]
     Route: 042
     Dates: start: 20091001, end: 20091018
  56. GRANISETRON HCL [Concomitant]
     Route: 042
     Dates: start: 20091001, end: 20091014
  57. ZOVIRAX [Concomitant]
     Route: 042
     Dates: start: 20091002, end: 20091030
  58. PRODIF [Concomitant]
     Route: 042
     Dates: start: 20091003, end: 20091011
  59. GLYCEOL [Concomitant]
     Route: 042
     Dates: start: 20091005, end: 20091007
  60. VENOGLOBULIN [Concomitant]
     Route: 042
     Dates: start: 20091006, end: 20091020
  61. VENOGLOBULIN [Concomitant]
     Route: 042
     Dates: start: 20091029, end: 20091117
  62. ANTHROBIN P [Concomitant]
     Route: 042
     Dates: start: 20091006, end: 20091020
  63. ANTHROBIN P [Concomitant]
     Route: 042
     Dates: start: 20091029, end: 20091116
  64. SODIUM CHLORIDE [Concomitant]
     Dates: start: 20091007, end: 20091018
  65. SULFATE DE MAGNESIUM [Concomitant]
     Dates: start: 20091007, end: 20091018
  66. SANDIMMUNE [Concomitant]
     Route: 042
     Dates: start: 20091007, end: 20091116
  67. HAPTOGLOBIN [Concomitant]
     Route: 042
     Dates: start: 20091007, end: 20091020
  68. SOLU-CORTEF [Concomitant]
     Dates: start: 20091007, end: 20091008
  69. FUNGUARD [Concomitant]
     Route: 042
     Dates: start: 20091011, end: 20091026
  70. ZANTAC [Concomitant]
     Dates: start: 20091013, end: 20091216
  71. ALBUMIN (HUMAN) [Concomitant]
     Route: 042
     Dates: start: 20091015, end: 20091015
  72. HANP [Concomitant]
     Dates: start: 20091016, end: 20091021
  73. ALBUMIN (HUMAN) [Concomitant]
     Route: 042
     Dates: start: 20091016, end: 20091017
  74. VEEN F [Concomitant]
     Route: 042
     Dates: start: 20091016, end: 20091017
  75. SOLDACTONE [Concomitant]
     Route: 042
     Dates: start: 20091017, end: 20091018
  76. SOLITA-T NO.3 [Concomitant]
     Route: 042
     Dates: start: 20091023, end: 20091026
  77. VFEND [Concomitant]
     Route: 042
     Dates: start: 20091023, end: 20091026
  78. SOLITA-T [Concomitant]
     Route: 042
     Dates: start: 20091028, end: 20091110
  79. SOLU-MEDROL [Concomitant]
     Route: 042
     Dates: start: 20091106, end: 20091109
  80. RINGER'S SOLUTION [Concomitant]
     Route: 042
     Dates: start: 20091111, end: 20091216
  81. PREDNISOLONE [Concomitant]
     Dates: start: 20091112
  82. ATROPINE [Concomitant]
     Dates: start: 20091120, end: 20091214
  83. MIDAZOLAM HCL [Concomitant]
     Dates: start: 20091120, end: 20091214
  84. FOY [Concomitant]
     Route: 042
     Dates: start: 20091207, end: 20091214

REACTIONS (5)
  - FEBRILE NEUTROPENIA [None]
  - HEPATIC VEIN OCCLUSION [None]
  - PERICARDIAL EFFUSION [None]
  - PULMONARY OEDEMA [None]
  - RESPIRATORY DISORDER [None]
